FAERS Safety Report 13141291 (Version 6)
Quarter: 2018Q2

REPORT INFORMATION
  Report Type: Report from Study
  Country: CA (occurrence: CA)
  Receive Date: 20170124
  Receipt Date: 20180403
  Transmission Date: 20180711
  Serious: Yes (Death, Hospitalization, Other)
  Sender: FDA-Public Use
  Company Number: CA-ROCHE-ITM201504IM014137

PATIENT
  Age: 60 Year
  Sex: Male
  Weight: 93.4 kg

DRUGS (17)
  1. ESBRIET [Suspect]
     Active Substance: PIRFENIDONE
     Indication: IDIOPATHIC PULMONARY FIBROSIS
     Route: 048
     Dates: start: 20150410
  2. ESBRIET [Suspect]
     Active Substance: PIRFENIDONE
     Route: 048
  3. TRAUMEEL [Concomitant]
  4. SYMBICORT [Concomitant]
     Active Substance: BUDESONIDE\FORMOTEROL FUMARATE DIHYDRATE
  5. ESBRIET [Suspect]
     Active Substance: PIRFENIDONE
     Route: 048
     Dates: start: 20160912, end: 2017
  6. AMLODIPINE BESYLATE. [Concomitant]
     Active Substance: AMLODIPINE BESYLATE
  7. ALLOPURINOL. [Concomitant]
     Active Substance: ALLOPURINOL
  8. GLUMETZA [Concomitant]
     Active Substance: METFORMIN HYDROCHLORIDE
  9. VENTOLIN [Concomitant]
     Active Substance: ALBUTEROL SULFATE
     Dosage: PRIOR TO PFT
     Route: 065
  10. TRAMADOL. [Concomitant]
     Active Substance: TRAMADOL
  11. LYRICA [Concomitant]
     Active Substance: PREGABALIN
  12. PULMICORT TURBUHALER [Concomitant]
     Active Substance: BUDESONIDE
  13. PANTOLOC [Concomitant]
     Active Substance: PANTOPRAZOLE SODIUM
  14. ESBRIET [Suspect]
     Active Substance: PIRFENIDONE
     Route: 048
  15. NASONEX [Concomitant]
     Active Substance: MOMETASONE FUROATE
  16. TUDORZA PRESSAIR [Concomitant]
     Active Substance: ACLIDINIUM BROMIDE
  17. CIALIS [Concomitant]
     Active Substance: TADALAFIL

REACTIONS (10)
  - Bacterial infection [Recovered/Resolved]
  - Cardiac arrest [Fatal]
  - Dyspnoea [Unknown]
  - Pulmonary function test abnormal [Unknown]
  - Lung disorder [Unknown]
  - Lung infection [Unknown]
  - Hot flush [Not Recovered/Not Resolved]
  - Nausea [Not Recovered/Not Resolved]
  - Pneumonia [Recovered/Resolved]
  - Pleural effusion [Unknown]

NARRATIVE: CASE EVENT DATE: 20150414
